FAERS Safety Report 5828291-0 (Version None)
Quarter: 2008Q3

REPORT INFORMATION
  Report Type: 
  Country: None (occurrence: None)
  Receive Date: 20080724
  Receipt Date: 20080630
  Transmission Date: 20090109
  Serious: Yes (Hospitalization)
  Sender: FDA-Public Use
  Company Number: ALB-008-08-FR

PATIENT
  Age: 4 Year
  Sex: Male

DRUGS (1)
  1. ALBUMIN (HUMAN) [Suspect]
     Indication: NEPHROTIC SYNDROME
     Dosage: 20 G
     Route: 042
     Dates: start: 20080620, end: 20080620

REACTIONS (3)
  - LIVEDO RETICULARIS [None]
  - PYREXIA [None]
  - TACHYCARDIA [None]
